FAERS Safety Report 20656398 (Version 14)
Quarter: 2023Q2

REPORT INFORMATION
  Report Type: Spontaneous
  Country: CA (occurrence: CA)
  Receive Date: 20220331
  Receipt Date: 20230608
  Transmission Date: 20230721
  Serious: Yes (Other)
  Sender: FDA-Public Use
  Company Number: CA-CELLTRION INC.-2022CA003718

PATIENT

DRUGS (11)
  1. INFLECTRA [Suspect]
     Active Substance: INFLIXIMAB-DYYB
     Indication: Enteritis
     Dosage: 5 MG/KG, WEEK 0-2-6 THEN EVERY 8 WEEKS
     Route: 042
     Dates: start: 20220317
  2. INFLECTRA [Suspect]
     Active Substance: INFLIXIMAB-DYYB
     Indication: Crohn^s disease
     Dosage: 5 MG/KG, WEEK 0-2-6 THEN EVERY 8 WEEKS
     Route: 042
     Dates: start: 20220329
  3. INFLECTRA [Suspect]
     Active Substance: INFLIXIMAB-DYYB
     Dosage: 5 MG/KG, WEEK 0-2-6 THEN EVERY 8 WEEKS
     Route: 042
     Dates: start: 20220427
  4. INFLECTRA [Suspect]
     Active Substance: INFLIXIMAB-DYYB
     Dosage: 400 MG (SUPPOSED TO RECEIVE 5 MG/KG)
     Route: 042
     Dates: start: 20220817
  5. INFLECTRA [Suspect]
     Active Substance: INFLIXIMAB-DYYB
     Dosage: 410 MG (SUPPOSED TO RECEIVE 5 MG/KG), WEEK 0-2-6 THEN EVERY 8 WEEKS
     Route: 042
     Dates: start: 20221012
  6. INFLECTRA [Suspect]
     Active Substance: INFLIXIMAB-DYYB
     Dosage: 5 MG/KG, WEEK 0-2-6 THEN EVERY 8 WEEKS
     Route: 042
     Dates: start: 20221207
  7. INFLECTRA [Suspect]
     Active Substance: INFLIXIMAB-DYYB
     Dosage: 415 MG [(5MG/KG), EVERY 8 WEEKS]
     Route: 042
     Dates: start: 20230201
  8. INFLECTRA [Suspect]
     Active Substance: INFLIXIMAB-DYYB
     Dosage: 415 MG [(5MG/KG), EVERY 8 WEEKS]
     Route: 042
     Dates: start: 20230329
  9. PREDNISONE [Concomitant]
     Active Substance: PREDNISONE
     Dosage: 1 DF DOSAGE INFORMATION NOT AVAILABLE
     Route: 065
     Dates: start: 202208
  10. PURINETHOL [Concomitant]
     Active Substance: MERCAPTOPURINE
     Indication: Enteritis
     Dosage: UNK
     Route: 065
  11. PURINETHOL [Concomitant]
     Active Substance: MERCAPTOPURINE
     Dosage: 1 DOSAGE FORM
     Route: 065

REACTIONS (17)
  - Ankylosing spondylitis [Unknown]
  - Diarrhoea [Not Recovered/Not Resolved]
  - Influenza [Not Recovered/Not Resolved]
  - Nausea [Recovered/Resolved]
  - Nipple infection [Not Recovered/Not Resolved]
  - Polyarthritis [Not Recovered/Not Resolved]
  - Breast abscess [Recovered/Resolved]
  - Therapeutic product effect incomplete [Unknown]
  - Abdominal pain [Not Recovered/Not Resolved]
  - Arthralgia [Recovering/Resolving]
  - Condition aggravated [Not Recovered/Not Resolved]
  - Decreased appetite [Not Recovered/Not Resolved]
  - Headache [Not Recovered/Not Resolved]
  - Hypertrichosis [Not Recovered/Not Resolved]
  - Vomiting [Not Recovered/Not Resolved]
  - Drug level increased [Not Recovered/Not Resolved]
  - Inappropriate schedule of product administration [Unknown]

NARRATIVE: CASE EVENT DATE: 20220101
